FAERS Safety Report 4907273-7 (Version None)
Quarter: 2006Q1

REPORT INFORMATION
  Report Type: 
  Country: None (occurrence: None)
  Receive Date: 20060207
  Receipt Date: 20060126
  Transmission Date: 20060701
  Serious: Yes (Other)
  Sender: FDA-Public Use
  Company Number: HQWYE936312DEC05

PATIENT
  Age: 58 Year
  Sex: Male
  Weight: 72.64 kg

DRUGS (9)
  1. PROGRAF [Suspect]
     Indication: PROPHYLAXIS AGAINST TRANSPLANT REJECTION
     Dosage: 2.5 MG; 4 MG 2X PER 1 DAY, ORAL
     Route: 048
     Dates: end: 20051201
  2. PROGRAF [Suspect]
     Indication: PROPHYLAXIS AGAINST TRANSPLANT REJECTION
     Dosage: 2.5 MG; 4 MG 2X PER 1 DAY, ORAL
     Route: 048
     Dates: start: 20051201
  3. CELLCEPT [Concomitant]
  4. PREDNISONE [Concomitant]
  5. ZENAPAX [Concomitant]
  6. KLONOPIN [Concomitant]
  7. CENTRUM SILVER (MULTIVITAMIN/MULTIMINERAL) [Concomitant]
  8. ZINC (ZINC) [Concomitant]
  9. VITAMIN E [Concomitant]

REACTIONS (2)
  - KIDNEY TRANSPLANT REJECTION [None]
  - THERAPY NON-RESPONDER [None]
